FAERS Safety Report 15272578 (Version 3)
Quarter: 2020Q3

REPORT INFORMATION
  Report Type: Report from Study
  Country: CN (occurrence: CN)
  Receive Date: 20180813
  Receipt Date: 20190201
  Transmission Date: 20201105
  Serious: Yes (Death, Hospitalization, Disabling)
  Sender: FDA-Public Use
  Company Number: CN-ASTRAZENECA-2018SE99078

PATIENT
  Age: 24748 Day
  Sex: Female

DRUGS (34)
  1. DURVALUMAB. [Suspect]
     Active Substance: DURVALUMAB
     Indication: SMALL CELL LUNG CANCER
     Route: 042
     Dates: start: 20180603, end: 20180603
  2. ETOPOSIDE. [Suspect]
     Active Substance: ETOPOSIDE
     Indication: SMALL CELL LUNG CANCER
     Dosage: 75.0MG/M2 ONCE/SINGLE ADMINISTRATION
     Route: 065
     Dates: start: 20180628, end: 20180628
  3. METHYLPREDNISOLONE SODIUM SUCCINATE. [Concomitant]
     Active Substance: METHYLPREDNISOLONE SODIUM SUCCINATE
     Indication: ENTERITIS
     Route: 048
     Dates: start: 20180721, end: 20180722
  4. POLYSACCHARIDE?IRON COMPLEX [Concomitant]
     Indication: ANAEMIA
     Route: 048
     Dates: start: 20180722, end: 20180803
  5. POTASSIUM CHLORIDE. [Concomitant]
     Active Substance: POTASSIUM CHLORIDE
     Indication: PROPHYLAXIS
     Dosage: 30.0ML ONCE/SINGLE ADMINISTRATION
     Route: 048
     Dates: start: 20180728, end: 20180728
  6. FOLIC ACID. [Concomitant]
     Active Substance: FOLIC ACID
     Indication: ENTERITIS
     Route: 048
     Dates: start: 20180722, end: 20180803
  7. FUROSEMIDE. [Concomitant]
     Active Substance: FUROSEMIDE
     Indication: MYOCARDITIS
     Dosage: 10.0MG ONCE/SINGLE ADMINISTRATION
     Route: 042
     Dates: start: 20180722, end: 20180722
  8. SOMATOSTATIN [Concomitant]
     Active Substance: SOMATOSTATIN
     Indication: GASTROINTESTINAL HAEMORRHAGE
     Dosage: 3 MG
     Route: 030
     Dates: start: 20180722, end: 20180724
  9. ETOPOSIDE. [Suspect]
     Active Substance: ETOPOSIDE
     Indication: SMALL CELL LUNG CANCER
     Dosage: 100.0MG/M2 ONCE/SINGLE ADMINISTRATION
     Route: 065
     Dates: start: 20180605, end: 20180605
  10. ETOPOSIDE. [Suspect]
     Active Substance: ETOPOSIDE
     Indication: SMALL CELL LUNG CANCER
     Dosage: 75.0MG/M2 ONCE/SINGLE ADMINISTRATION
     Route: 065
     Dates: start: 20180627, end: 20180627
  11. METHYLPREDNISOLONE SODIUM SUCCINATE. [Concomitant]
     Active Substance: METHYLPREDNISOLONE SODIUM SUCCINATE
     Indication: ENTERITIS
     Route: 048
     Dates: start: 20180725, end: 20180802
  12. OCTREOTIDE ACETATE. [Concomitant]
     Active Substance: OCTREOTIDE ACETATE
     Indication: PROPHYLAXIS
     Route: 058
     Dates: start: 20180724, end: 20180803
  13. POTASSIUM CHLORIDE. [Concomitant]
     Active Substance: POTASSIUM CHLORIDE
     Indication: PROPHYLAXIS
     Dosage: 20.0ML ONCE/SINGLE ADMINISTRATION
     Route: 048
     Dates: start: 20180729, end: 20180729
  14. ETOPOSIDE. [Suspect]
     Active Substance: ETOPOSIDE
     Indication: SMALL CELL LUNG CANCER
     Dosage: 75.0MG/M2 ONCE/SINGLE ADMINISTRATION
     Route: 065
     Dates: start: 20180626, end: 20180626
  15. METHYLPREDNISOLONE SODIUM SUCCINATE. [Concomitant]
     Active Substance: METHYLPREDNISOLONE SODIUM SUCCINATE
     Indication: ENTERITIS
     Route: 048
     Dates: start: 20180724, end: 20180725
  16. METHYLPREDNISOLONE SODIUM SUCCINATE. [Concomitant]
     Active Substance: METHYLPREDNISOLONE SODIUM SUCCINATE
     Indication: ENTERITIS
     Dosage: 80.0MG ONCE/SINGLE ADMINISTRATION
     Route: 048
     Dates: start: 20180802, end: 20180802
  17. POTASSIUM CHLORIDE. [Concomitant]
     Active Substance: POTASSIUM CHLORIDE
     Indication: PROPHYLAXIS
     Dosage: 40.0ML ONCE/SINGLE ADMINISTRATION
     Route: 048
     Dates: start: 20180726, end: 20180726
  18. DURVALUMAB. [Suspect]
     Active Substance: DURVALUMAB
     Indication: SMALL CELL LUNG CANCER
     Route: 042
     Dates: start: 20180626, end: 20180626
  19. ESOMEPRAZOLE SODIUM. [Concomitant]
     Active Substance: ESOMEPRAZOLE SODIUM
     Indication: PROPHYLAXIS
     Dosage: 40 MG
     Route: 042
     Dates: start: 20180710, end: 20180716
  20. TREMELIMUMAB. [Suspect]
     Active Substance: TREMELIMUMAB
     Indication: SMALL CELL LUNG CANCER
     Route: 042
     Dates: start: 20180603, end: 20180603
  21. TREMELIMUMAB. [Suspect]
     Active Substance: TREMELIMUMAB
     Indication: SMALL CELL LUNG CANCER
     Route: 042
     Dates: start: 20180626, end: 20180626
  22. CARBOPLATIN. [Suspect]
     Active Substance: CARBOPLATIN
     Indication: SMALL CELL LUNG CANCER
     Dosage: 400 AUC
     Route: 065
     Dates: start: 20180603, end: 20180603
  23. METHYLPREDNISOLONE SODIUM SUCCINATE. [Concomitant]
     Active Substance: METHYLPREDNISOLONE SODIUM SUCCINATE
     Indication: ENTERITIS
     Route: 048
     Dates: start: 20180722, end: 20180724
  24. SODIUM CHLORIDE. [Concomitant]
     Active Substance: SODIUM CHLORIDE
     Indication: HYPONATRAEMIA
     Route: 048
     Dates: start: 20180726, end: 20180731
  25. ETOPOSIDE. [Suspect]
     Active Substance: ETOPOSIDE
     Indication: SMALL CELL LUNG CANCER
     Dosage: 100.0MG/M2 ONCE/SINGLE ADMINISTRATION
     Route: 065
     Dates: start: 20180603, end: 20180603
  26. ETOPOSIDE. [Suspect]
     Active Substance: ETOPOSIDE
     Indication: SMALL CELL LUNG CANCER
     Dosage: 100.0MG/M2 ONCE/SINGLE ADMINISTRATION
     Route: 065
     Dates: start: 20180604, end: 20180604
  27. METHYLPREDNISOLONE SODIUM SUCCINATE. [Concomitant]
     Active Substance: METHYLPREDNISOLONE SODIUM SUCCINATE
     Indication: ENTERITIS
     Route: 048
     Dates: start: 20180802, end: 20180802
  28. POTASSIUM CHLORIDE. [Concomitant]
     Active Substance: POTASSIUM CHLORIDE
     Indication: PROPHYLAXIS
     Dosage: 7.5ML ONCE/SINGLE ADMINISTRATION
     Route: 042
     Dates: start: 20180728, end: 20180728
  29. ATORVASTATIN CALCIUM. [Concomitant]
     Active Substance: ATORVASTATIN CALCIUM
     Indication: MYOCARDITIS
     Dosage: 20 MG HS
     Route: 048
     Dates: start: 20180723, end: 20180803
  30. CARBOPLATIN. [Suspect]
     Active Substance: CARBOPLATIN
     Indication: SMALL CELL LUNG CANCER
     Dosage: 300 AUC
     Route: 065
     Dates: start: 20180626, end: 20180626
  31. STUDY PROCEDURE [Suspect]
     Active Substance: INVESTIGATIONAL PRODUCT
     Indication: SMALL CELL LUNG CANCER
     Dosage: IT OCCUR DUE TO IO TREATMENT
     Route: 065
  32. ESOMEPRAZOLE SODIUM. [Concomitant]
     Active Substance: ESOMEPRAZOLE SODIUM
     Indication: PROPHYLAXIS
     Dosage: 40 MG
     Route: 042
     Dates: start: 20180721, end: 20180803
  33. IMIPENEM [Concomitant]
     Active Substance: IMIPENEM
     Indication: ENTERITIS
     Dosage: 1 BRANCH
     Route: 042
     Dates: start: 20180722, end: 20180722
  34. FUROSEMIDE. [Concomitant]
     Active Substance: FUROSEMIDE
     Indication: MYOCARDITIS
     Dosage: 20.0MG ONCE/SINGLE ADMINISTRATION
     Route: 048
     Dates: start: 20180728, end: 20180728

REACTIONS (1)
  - Myocarditis [Fatal]

NARRATIVE: CASE EVENT DATE: 20180730
